FAERS Safety Report 7828690-1 (Version None)
Quarter: 2011Q4

REPORT INFORMATION
  Report Type: 
  Country: None (occurrence: None)
  Receive Date: 20111020
  Receipt Date: 20111004
  Transmission Date: 20120403
  Serious: Yes (Other)
  Sender: FDA-Public Use
  Company Number: US-BAYER-2011-062542

PATIENT
  Age: 24 Year
  Sex: Female

DRUGS (8)
  1. YASMIN [Suspect]
     Indication: CONTRACEPTION
     Dosage: UNK
     Dates: start: 20091101, end: 20091201
  2. CIPROFLOXACIN [Concomitant]
     Indication: ANTIBIOTIC THERAPY
     Dosage: UNK
     Route: 048
     Dates: start: 20091215
  3. YAZ [Suspect]
     Indication: CONTRACEPTION
     Dosage: UNK
     Dates: start: 20090201, end: 20091201
  4. YASMIN [Suspect]
     Indication: MENSTRUAL CYCLE MANAGEMENT
  5. YAZ [Suspect]
     Indication: MENSTRUAL CYCLE MANAGEMENT
  6. IBUPROFEN (ADVIL) [Concomitant]
     Indication: PAIN
     Dosage: UNK
     Route: 048
     Dates: start: 20091201
  7. AZITHROMYCIN [Concomitant]
     Dosage: 250 MG, UNK
     Route: 048
     Dates: start: 20091102
  8. NASACORT AQ [Concomitant]
     Dosage: UNK
     Route: 045
     Dates: start: 20091102

REACTIONS (4)
  - DEEP VEIN THROMBOSIS [None]
  - CHOLELITHIASIS [None]
  - INJURY [None]
  - PAIN IN EXTREMITY [None]
